FAERS Safety Report 7439847-6 (Version None)
Quarter: 2011Q2

REPORT INFORMATION
  Report Type: 
  Country: None (occurrence: None)
  Receive Date: 20110427
  Receipt Date: 20101028
  Transmission Date: 20111010
  Serious: No
  Sender: FDA-Public Use
  Company Number: US-MYLANLABS-2010S1020001

PATIENT
  Age: 69 Year
  Sex: Female
  Weight: 52.16 kg

DRUGS (9)
  1. SIMVASTATIN [Concomitant]
  2. ASPIRIN [Concomitant]
  3. DILTIAZEM HCL [Suspect]
     Indication: BLOOD PRESSURE INCREASED
     Route: 048
     Dates: start: 20101006, end: 20101012
  4. NADOLOL [Concomitant]
  5. PROTONIX [Concomitant]
  6. VITAMIN TAB [Concomitant]
  7. MAGNESIUM [Concomitant]
  8. LABETALOL [Concomitant]
  9. EVISTA [Concomitant]

REACTIONS (4)
  - RASH GENERALISED [None]
  - REACTION TO DRUG EXCIPIENTS [None]
  - PYREXIA [None]
  - PARAESTHESIA [None]
